FAERS Safety Report 9829650 (Version 1)
Quarter: 2014Q1

REPORT INFORMATION
  Report Type: Spontaneous
  Country: DK (occurrence: DK)
  Receive Date: 20140120
  Receipt Date: 20140120
  Transmission Date: 20141002
  Serious: Yes (Death)
  Sender: FDA-Public Use
  Company Number: DK-ROCHE-1335168

PATIENT
  Age: 64 Year
  Sex: Female
  Weight: 59 kg

DRUGS (3)
  1. ACTILYSE [Suspect]
     Indication: CAROTID ARTERY THROMBOSIS
     Route: 042
     Dates: start: 20140103, end: 20140103
  2. MAGNYL [Suspect]
     Indication: THROMBOSIS PROPHYLAXIS
     Dosage: MAGNYL ^DAK^
     Route: 048
     Dates: start: 20140104
  3. CLOPIDOGREL [Concomitant]
     Indication: THROMBOSIS PROPHYLAXIS
     Route: 065
     Dates: start: 20140104

REACTIONS (3)
  - Cerebral haemorrhage [Fatal]
  - Brain herniation [Fatal]
  - Intracranial pressure increased [Fatal]
